FAERS Safety Report 5815181-2 (Version None)
Quarter: 2008Q3

REPORT INFORMATION
  Report Type: 
  Country: None (occurrence: None)
  Receive Date: 20080718
  Receipt Date: 20070704
  Transmission Date: 20090109
  Serious: Yes (Hospitalization, Other)
  Sender: FDA-Public Use
  Company Number: IT-ROCHE-571390

PATIENT
  Age: 66 Year
  Sex: Male

DRUGS (6)
  1. PEGASYS [Suspect]
     Route: 065
     Dates: start: 20061002
  2. PEGASYS [Suspect]
     Dosage: DOSAGE REDUCED.
     Route: 065
  3. PEGASYS [Suspect]
     Route: 065
  4. RIBAVIRIN [Suspect]
     Route: 065
     Dates: start: 20061002
  5. RIBAVIRIN [Suspect]
     Dosage: DOSAGE REDUCED.
     Route: 065
  6. RIBAVIRIN [Suspect]
     Route: 065

REACTIONS (6)
  - ANAEMIA [None]
  - ASCITES [None]
  - CARDIAC FAILURE [None]
  - DYSPNOEA [None]
  - OEDEMA PERIPHERAL [None]
  - PYREXIA [None]
